FAERS Safety Report 20182561 (Version 2)
Quarter: 2022Q2

REPORT INFORMATION
  Report Type: Spontaneous
  Country: US (occurrence: US)
  Receive Date: 20211214
  Receipt Date: 20220418
  Transmission Date: 20220721
  Serious: No
  Sender: FDA-Public Use
  Company Number: US-PFIZER INC-202101697016

PATIENT
  Age: 75 Year
  Sex: Female
  Weight: 85.73 kg

DRUGS (1)
  1. IBRANCE [Suspect]
     Active Substance: PALBOCICLIB
     Dosage: UNK

REACTIONS (6)
  - Full blood count abnormal [Recovered/Resolved]
  - Red blood cell count decreased [Unknown]
  - White blood cell count decreased [Recovered/Resolved]
  - Somnolence [Recovered/Resolved]
  - Decreased appetite [Unknown]
  - Fatigue [Unknown]
